FAERS Safety Report 6882421 (Version 2)
Quarter: 2025Q1

REPORT INFORMATION
  Report Type: Spontaneous
  Country: US (occurrence: US)
  Receive Date: 20090115
  Receipt Date: 20250113
  Transmission Date: 20250409
  Serious: Yes (Other)
  Sender: PFIZER
  Company Number: US-PFIZER INC-2009151746

PATIENT
  Age: 34 Year
  Sex: Male

DRUGS (9)
  1. METRONIDAZOLE [Suspect]
     Active Substance: METRONIDAZOLE
     Indication: Meningitis
     Dosage: 500 MG, 4X/DAY
     Dates: start: 199907, end: 199908
  2. METRONIDAZOLE [Suspect]
     Active Substance: METRONIDAZOLE
     Indication: Bacteroides bacteraemia
  3. METRONIDAZOLE [Suspect]
     Active Substance: METRONIDAZOLE
     Indication: Meningitis
     Dosage: 250 MG, 4X/DAY
     Route: 042
     Dates: start: 199906, end: 199907
  4. METRONIDAZOLE [Suspect]
     Active Substance: METRONIDAZOLE
     Indication: Bacteroides bacteraemia
  5. FUROSEMIDE [Concomitant]
     Active Substance: FUROSEMIDE
     Dosage: 40 MG, FREQ: AT BEDTIME
     Route: 048
  6. LACTULOSE [Concomitant]
     Active Substance: LACTULOSE
     Dosage: 30 ML, 4X/DAY
  7. SPIRONOLACTONE [Concomitant]
     Active Substance: SPIRONOLACTONE
     Dosage: 200 MG, DAILY
  8. AMITRIPTYLINE [Concomitant]
     Active Substance: AMITRIPTYLINE
     Dosage: 10 MG, 1X/DAY (AT BEDTIME)
  9. PROPRANOLOL [Concomitant]
     Active Substance: PROPRANOLOL HYDROCHLORIDE
     Dosage: 10 MG, 2X/DAY

REACTIONS (2)
  - Nervous system disorder [Recovering/Resolving]
  - Neuropathy peripheral [Recovering/Resolving]

NARRATIVE: CASE EVENT DATE: 19990801
